FAERS Safety Report 4503907-X (Version None)
Quarter: 2004Q4

REPORT INFORMATION
  Report Type: 
  Country: None (occurrence: None)
  Receive Date: 20041115
  Receipt Date: 20041103
  Transmission Date: 20050328
  Serious: Yes (Other)
  Sender: FDA-Public Use
  Company Number: 2004088884

PATIENT
  Sex: Female

DRUGS (4)
  1. LIPITOR [Suspect]
     Indication: ILL-DEFINED DISORDER
     Dosage: 20 MG (20 MG, 1 IN 1 D), ORAL
     Route: 048
     Dates: start: 19970101
  2. ALENDRONATE SODIUM [Concomitant]
  3. DYAZIDE [Concomitant]
  4. LEVOTHYROXINE SODIUM [Concomitant]

REACTIONS (6)
  - AMNESIA [None]
  - ANXIETY [None]
  - DISORIENTATION [None]
  - FIBROCYSTIC BREAST DISEASE [None]
  - HYPERTENSION [None]
  - WEIGHT INCREASED [None]
